FAERS Safety Report 9263377 (Version 1)
Quarter: 2013Q2

REPORT INFORMATION
  Report Type: Spontaneous
  Country: US (occurrence: US)
  Receive Date: 20130430
  Receipt Date: 20130430
  Transmission Date: 20140414
  Serious: No
  Sender: FDA-Public Use
  Company Number: US-ABBOTT-12P-163-0977168-00

PATIENT
  Sex: Female
  Weight: 65.83 kg

DRUGS (13)
  1. PANCREATIN [Suspect]
     Indication: PANCREATIC INSUFFICIENCY
     Dosage: WITH MEALS; 24,000 USP UNITS LIPASE; 76,000 USP UNITS PROTEASE; 120,000 USP UNITS AMYLASE
     Dates: start: 2008
  2. CYMBALTA [Concomitant]
     Indication: DEPRESSION
  3. CYMBALTA [Concomitant]
     Indication: NEUROPATHY PERIPHERAL
  4. WELLBUTRIN [Concomitant]
     Indication: DEPRESSION
  5. WELLBUTRIN [Concomitant]
     Indication: ASTHENIA
  6. TRAZADONE [Concomitant]
     Indication: INSOMNIA
  7. AMILODIPINE [Concomitant]
     Indication: HYPERTENSION
  8. PREVACID [Concomitant]
     Indication: GASTROOESOPHAGEAL REFLUX DISEASE
  9. PREVACID [Concomitant]
     Indication: PRODUCT USED FOR UNKNOWN INDICATION
  10. GABAPENTIN [Concomitant]
     Indication: NEUROPATHY PERIPHERAL
  11. SUPER DIGESTIVE ENZYMES OTC [Concomitant]
     Indication: PRODUCT USED FOR UNKNOWN INDICATION
  12. MAGNESIUM [Concomitant]
     Indication: CONSTIPATION
  13. PROBIOTIC [Concomitant]
     Indication: CONSTIPATION

REACTIONS (5)
  - Tremor [Recovered/Resolved]
  - Asthenia [Recovered/Resolved]
  - Drug administration error [Unknown]
  - Constipation [Not Recovered/Not Resolved]
  - Diarrhoea [Not Recovered/Not Resolved]
